FAERS Safety Report 11616161 (Version 1)
Quarter: 2015Q4

REPORT INFORMATION
  Report Type: Spontaneous
  Country: US (occurrence: US)
  Receive Date: 20151009
  Receipt Date: 20151009
  Transmission Date: 20160304
  Serious: No
  Sender: FDA-Public Use
  Company Number: US-BAYER-2015-435991

PATIENT
  Sex: Male

DRUGS (1)
  1. NEXAVAR [Suspect]
     Active Substance: SORAFENIB
     Dosage: 200 MG, BID (1 PILL IN THE MORNING AND 1 PILL IN THE EVENING)
     Route: 048
     Dates: start: 201503, end: 20150916

REACTIONS (1)
  - Headache [None]

NARRATIVE: CASE EVENT DATE: 201509
